FAERS Safety Report 12627909 (Version 1)
Quarter: 2016Q3

REPORT INFORMATION
  Report Type: Spontaneous
  Country: GB (occurrence: GB)
  Receive Date: 20160807
  Receipt Date: 20160807
  Transmission Date: 20161109
  Serious: Yes (Other)
  Sender: FDA-Public Use
  Company Number: GB-TEVA-681075ACC

PATIENT
  Age: 50 Year
  Sex: Female
  Weight: 78 kg

DRUGS (9)
  1. DULOXETINE. [Suspect]
     Active Substance: DULOXETINE
     Dates: start: 20160628
  2. FLUTICASONE [Concomitant]
     Active Substance: FLUTICASONE\FLUTICASONE PROPIONATE
     Dosage: 4 DOSAGE FORMS DAILY;
     Dates: start: 20151215, end: 20160613
  3. VENTOLIN [Concomitant]
     Active Substance: ALBUTEROL SULFATE
     Route: 055
     Dates: start: 20151215
  4. OMEPRAZOLE. [Concomitant]
     Active Substance: OMEPRAZOLE
     Dosage: 2 DOSAGE FORMS DAILY;
     Dates: start: 20150605
  5. SERETIDE [Concomitant]
     Active Substance: FLUTICASONE PROPIONATE\SALMETEROL XINAFOATE
     Dosage: 4 DOSAGE FORMS DAILY;
     Route: 055
     Dates: start: 20160613
  6. MIRABEGRON [Concomitant]
     Active Substance: MIRABEGRON
     Dosage: 1 DOSAGE FORMS DAILY;
     Dates: start: 20160718
  7. REVAXIS [Concomitant]
     Active Substance: DIPHTHERIA AND TETANUS TOXOIDS AND POLIOVIRUS VACCINE ANTIGENS
     Dates: start: 20160624, end: 20160625
  8. VAGIFEM [Concomitant]
     Active Substance: ESTRADIOL
     Dosage: INSERT 1 AT NIGHT FOR 2 WEEKS THEN 1 TWICE WEEKLY
     Dates: start: 20160624
  9. FUCIDIN [Concomitant]
     Active Substance: FUSIDIC ACID
     Dosage: 2 DOSAGE FORMS DAILY;
     Dates: start: 20160607, end: 20160614

REACTIONS (2)
  - Ocular discomfort [Recovered/Resolved]
  - Vision blurred [Recovered/Resolved]

NARRATIVE: CASE EVENT DATE: 20160628
